FAERS Safety Report 19111320 (Version 1)
Quarter: 2021Q2

REPORT INFORMATION
  Report Type: Spontaneous
  Country: US (occurrence: US)
  Receive Date: 20210409
  Receipt Date: 20210409
  Transmission Date: 20210717
  Serious: No
  Sender: FDA-Public Use
  Company Number: US-IGSA-BIG0013422

PATIENT
  Age: 12 Year
  Sex: Male
  Weight: 43.9 kg

DRUGS (3)
  1. GAMUNEX?C [Suspect]
     Active Substance: HUMAN IMMUNOGLOBULIN G
     Indication: IMMUNODEFICIENCY
     Dosage: 20 GRAM, TOTAL
     Route: 042
     Dates: start: 20210204, end: 20210204
  2. GAMUNEX?C [Suspect]
     Active Substance: HUMAN IMMUNOGLOBULIN G
     Indication: STEM CELL TRANSPLANT
     Dosage: 20 GRAM
     Route: 042
     Dates: start: 20180324
  3. GAMUNEX?C [Suspect]
     Active Substance: HUMAN IMMUNOGLOBULIN G
     Indication: ACUTE MYELOID LEUKAEMIA RECURRENT

REACTIONS (4)
  - Tachycardia [Unknown]
  - Pruritus [Unknown]
  - Urticaria [Recovered/Resolved]
  - Tachypnoea [Unknown]

NARRATIVE: CASE EVENT DATE: 20210204
